FAERS Safety Report 23185184 (Version 1)
Quarter: 2023Q4

REPORT INFORMATION
  Report Type: Spontaneous
  Country: JP (occurrence: JP)
  Receive Date: 20231115
  Receipt Date: 20231115
  Transmission Date: 20240110
  Serious: Yes (Death, Hospitalization)
  Sender: FDA-Public Use
  Company Number: JP-STRIDES ARCOLAB LIMITED-2023SP016853

PATIENT
  Age: 85 Year
  Sex: Male

DRUGS (14)
  1. CLARITHROMYCIN [Suspect]
     Active Substance: CLARITHROMYCIN
     Indication: Vascular device infection
     Dosage: 400 MILLIGRAM, BID
     Route: 048
  2. CLARITHROMYCIN [Suspect]
     Active Substance: CLARITHROMYCIN
     Indication: Mycobacterium abscessus infection
  3. IMIPENEM AND CILASTATIN [Suspect]
     Active Substance: CILASTATIN SODIUM\IMIPENEM
     Indication: Vascular device infection
     Dosage: 500 MILLIGRAM, QID
     Route: 042
  4. IMIPENEM AND CILASTATIN [Suspect]
     Active Substance: CILASTATIN SODIUM\IMIPENEM
     Indication: Mycobacterium abscessus infection
     Dosage: UNK
     Route: 065
  5. VANCOMYCIN [Suspect]
     Active Substance: VANCOMYCIN
     Indication: Vascular device infection
     Dosage: UNK
     Route: 065
  6. VANCOMYCIN [Suspect]
     Active Substance: VANCOMYCIN
     Indication: Mycobacterium abscessus infection
  7. MEROPENEM [Suspect]
     Active Substance: MEROPENEM
     Indication: Vascular device infection
     Dosage: UNK
     Route: 065
  8. MEROPENEM [Suspect]
     Active Substance: MEROPENEM
     Indication: Mycobacterium abscessus infection
  9. AMIKACIN [Suspect]
     Active Substance: AMIKACIN
     Indication: Vascular device infection
     Dosage: 300 MILLIGRAM, QOD
     Route: 065
  10. AMIKACIN [Suspect]
     Active Substance: AMIKACIN
     Indication: Mycobacterium abscessus infection
     Dosage: UNK
     Route: 065
  11. SITAFLOXACIN [Suspect]
     Active Substance: SITAFLOXACIN
     Indication: Vascular device infection
     Dosage: 100 MILLIGRAM, PER DAY
     Route: 065
  12. SITAFLOXACIN [Suspect]
     Active Substance: SITAFLOXACIN
     Indication: Mycobacterium abscessus infection
  13. LINEZOLID [Suspect]
     Active Substance: LINEZOLID
     Indication: Vascular device infection
     Dosage: UNK
     Route: 065
  14. LINEZOLID [Suspect]
     Active Substance: LINEZOLID
     Indication: Mycobacterium abscessus infection

REACTIONS (4)
  - Death [Fatal]
  - Pathogen resistance [Unknown]
  - Condition aggravated [Unknown]
  - Off label use [Unknown]
